FAERS Safety Report 21512323 (Version 3)
Quarter: 2023Q2

REPORT INFORMATION
  Report Type: Spontaneous
  Country: US (occurrence: None)
  Receive Date: 20221027
  Receipt Date: 20230426
  Transmission Date: 20230722
  Serious: No
  Sender: FDA-Public Use
  Company Number: US-Ultragenyx Pharmaceutical Inc.-US-UGNX-22-00525

PATIENT
  Age: 2 Year
  Sex: Female
  Weight: 13.6 kg

DRUGS (5)
  1. DOJOLVI [Suspect]
     Active Substance: TRIHEPTANOIN
     Indication: Glucose transporter type 1 deficiency syndrome
     Route: 048
     Dates: start: 20220727
  2. DOJOLVI [Suspect]
     Active Substance: TRIHEPTANOIN
     Route: 048
     Dates: start: 20220728
  3. DOJOLVI [Suspect]
     Active Substance: TRIHEPTANOIN
     Route: 048
     Dates: start: 20220722
  4. DOJOLVI [Suspect]
     Active Substance: TRIHEPTANOIN
     Dosage: 3ML OR 5ML
     Route: 048
  5. VITAMINS [Concomitant]
     Active Substance: VITAMINS
     Indication: Product used for unknown indication

REACTIONS (5)
  - Sleep disorder [Recovered/Resolved]
  - Illness [Recovered/Resolved]
  - Decreased appetite [Recovered/Resolved]
  - Nausea [Recovered/Resolved]
  - Off label use [Unknown]

NARRATIVE: CASE EVENT DATE: 20220727
